FAERS Safety Report 6458760-4 (Version None)
Quarter: 2009Q4

REPORT INFORMATION
  Report Type: 
  Country: None (occurrence: None)
  Receive Date: 20091127
  Receipt Date: 20091118
  Transmission Date: 20100525
  Serious: Yes (Other)
  Sender: FDA-Public Use
  Company Number: CH-ROCHE-669773

PATIENT
  Sex: Male
  Weight: 2.8 kg

DRUGS (2)
  1. XENICAL [Suspect]
     Indication: WEIGHT CONTROL
     Route: 064
     Dates: start: 20080505, end: 20080529
  2. REDUCTIL [Suspect]
     Indication: WEIGHT CONTROL
     Dosage: DOSE: 10 MG/D
     Route: 064
     Dates: start: 20080505, end: 20080529

REACTIONS (2)
  - FOETAL GROWTH RETARDATION [None]
  - OLIGOHYDRAMNIOS [None]
